FAERS Safety Report 9698606 (Version 1)
Quarter: 2013Q4

REPORT INFORMATION
  Report Type: Spontaneous
  Country: IT (occurrence: IT)
  Receive Date: 20131120
  Receipt Date: 20131120
  Transmission Date: 20140711
  Serious: Yes (Other)
  Sender: FDA-Public Use
  Company Number: IT-GLAXOSMITHKLINE-B0946001A

PATIENT
  Age: 89 Year
  Sex: Female

DRUGS (8)
  1. RYTHMOL [Suspect]
     Indication: ARRHYTHMIA
     Dosage: 325MG PER DAY
     Route: 048
     Dates: start: 20131103, end: 20131105
  2. VENLAFAXINE [Concomitant]
     Route: 048
  3. LANSOPRAZOLE [Concomitant]
     Route: 048
  4. OXYCODONE HYDROCHLORIDE + PARACETAMOL [Concomitant]
     Route: 048
  5. CYMBALTA [Concomitant]
     Route: 048
  6. HALCION [Concomitant]
     Route: 048
  7. SEQUACOR [Concomitant]
     Route: 048
  8. BRUFEN [Concomitant]
     Route: 048

REACTIONS (4)
  - Atrial fibrillation [Recovering/Resolving]
  - Ischaemic stroke [Recovering/Resolving]
  - Aphasia [Recovering/Resolving]
  - Somnolence [Recovering/Resolving]
